FAERS Safety Report 25933245 (Version 1)
Quarter: 2025Q4

REPORT INFORMATION
  Report Type: Report from Study
  Country: BR (occurrence: BR)
  Receive Date: 20251017
  Receipt Date: 20251017
  Transmission Date: 20260117
  Serious: Yes (Hospitalization, Other)
  Sender: AZURITY PHARMACEUTICALS
  Company Number: BR-AZURITY PHARMACEUTICALS, INC.-AZR202509-003189

PATIENT
  Age: 10 Year
  Sex: Female

DRUGS (2)
  1. TRIPTORELIN [Suspect]
     Active Substance: TRIPTORELIN
     Indication: Hormone level abnormal
     Dosage: 11.25 MILLIGRAM, UNK
     Route: 065
     Dates: start: 202310
  2. TRIPTORELIN [Suspect]
     Active Substance: TRIPTORELIN
     Indication: Product use in unapproved indication

REACTIONS (5)
  - Brain abscess [Unknown]
  - Seizure [Unknown]
  - Sinusitis [Unknown]
  - Product administered to patient of inappropriate age [Unknown]
  - Product use in unapproved indication [Unknown]

NARRATIVE: CASE EVENT DATE: 20250909
